FAERS Safety Report 8251650-6 (Version None)
Quarter: 2012Q2

REPORT INFORMATION
  Report Type: 
  Country: None (occurrence: None)
  Receive Date: 20120402
  Receipt Date: 20120211
  Transmission Date: 20120825
  Serious: No
  Sender: FDA-Public Use
  Company Number: US-ABBOTT-12P-163-0891640-00

PATIENT
  Sex: Male
  Weight: 74.91 kg

DRUGS (14)
  1. ANDROGEL [Suspect]
     Indication: GENERAL SYMPTOM
  2. PREVACID [Concomitant]
     Indication: PRODUCT USED FOR UNKNOWN INDICATION
  3. ASPIRIN [Concomitant]
     Indication: PRODUCT USED FOR UNKNOWN INDICATION
  4. MIRALAX [Concomitant]
     Indication: PRODUCT USED FOR UNKNOWN INDICATION
  5. CITRICAL [Concomitant]
     Indication: PRODUCT USED FOR UNKNOWN INDICATION
  6. LISINOPRIL [Concomitant]
     Indication: PRODUCT USED FOR UNKNOWN INDICATION
  7. ANDROGEL [Suspect]
     Indication: BLOOD TESTOSTERONE FREE DECREASED
     Route: 061
     Dates: start: 20111223
  8. MORPHINE SULFATE [Concomitant]
     Indication: PRODUCT USED FOR UNKNOWN INDICATION
     Dates: start: 20110601
  9. PENICILLIN [Concomitant]
     Indication: OSTEOMYELITIS
  10. ZOCOR [Concomitant]
     Indication: PRODUCT USED FOR UNKNOWN INDICATION
  11. PROVIGIL [Concomitant]
     Indication: PRODUCT USED FOR UNKNOWN INDICATION
  12. NODOZ [Concomitant]
     Indication: PRODUCT USED FOR UNKNOWN INDICATION
  13. MELOXICAM [Concomitant]
     Indication: PRODUCT USED FOR UNKNOWN INDICATION
  14. MULTI-VITAMINS [Concomitant]
     Indication: PRODUCT USED FOR UNKNOWN INDICATION

REACTIONS (12)
  - BALANCE DISORDER [None]
  - ASTHENIA [None]
  - SOMNOLENCE [None]
  - DEPRESSED LEVEL OF CONSCIOUSNESS [None]
  - OEDEMA [None]
  - FLUID RETENTION [None]
  - FEAR OF FALLING [None]
  - APPLICATION SITE ERYTHEMA [None]
  - ADVANCED SLEEP PHASE [None]
  - SLEEP DISORDER [None]
  - LOSS OF LIBIDO [None]
  - DRUG INEFFECTIVE [None]
